FAERS Safety Report 6510268-3 (Version None)
Quarter: 2009Q4

REPORT INFORMATION
  Report Type: 
  Country: None (occurrence: None)
  Receive Date: 20091222
  Receipt Date: 20091211
  Transmission Date: 20100525
  Serious: Yes (Other)
  Sender: FDA-Public Use
  Company Number: US-GENENTECH-295926

PATIENT
  Sex: Female
  Weight: 68.2 kg

DRUGS (16)
  1. XOLAIR [Suspect]
     Indication: ASTHMA
     Dosage: UNK
     Route: 058
     Dates: start: 20091109
  2. ZANTAC [Concomitant]
     Indication: DRUG USE FOR UNKNOWN INDICATION
  3. ALLEGRA [Concomitant]
     Indication: DRUG USE FOR UNKNOWN INDICATION
     Dosage: 180 MG, UNK
  4. ALBUTEROL [Concomitant]
     Indication: DRUG USE FOR UNKNOWN INDICATION
  5. ALBUTEROL SULFATE AUTOHALER [Concomitant]
     Indication: DRUG USE FOR UNKNOWN INDICATION
  6. ALVESCO [Concomitant]
     Indication: DRUG USE FOR UNKNOWN INDICATION
  7. PREDNISONE [Concomitant]
     Indication: DRUG USE FOR UNKNOWN INDICATION
     Dosage: 50 MG, UNK
  8. DOXEPIN HCL [Concomitant]
     Indication: DRUG USE FOR UNKNOWN INDICATION
     Dosage: 25 MG, UNK
  9. ALEVE (CAPLET) [Concomitant]
     Indication: DRUG USE FOR UNKNOWN INDICATION
  10. MUCINEX D [Concomitant]
     Indication: DRUG USE FOR UNKNOWN INDICATION
  11. FISH OIL [Concomitant]
     Indication: DRUG USE FOR UNKNOWN INDICATION
  12. CALCIUM [Concomitant]
     Indication: DRUG USE FOR UNKNOWN INDICATION
  13. VITAMIN A [Concomitant]
     Indication: DRUG USE FOR UNKNOWN INDICATION
  14. VITAMIN B 1-6-12 [Concomitant]
     Indication: DRUG USE FOR UNKNOWN INDICATION
  15. VITAMIN D [Concomitant]
     Indication: DRUG USE FOR UNKNOWN INDICATION
  16. VITAMIN E [Concomitant]
     Indication: DRUG USE FOR UNKNOWN INDICATION

REACTIONS (4)
  - OBSTRUCTIVE AIRWAYS DISORDER [None]
  - OEDEMA MOUTH [None]
  - OEDEMA PERIPHERAL [None]
  - SWELLING FACE [None]
